FAERS Safety Report 10753314 (Version 2)
Quarter: 2015Q1

REPORT INFORMATION
  Report Type: Spontaneous
  Country: US (occurrence: US)
  Receive Date: 20150130
  Receipt Date: 20150214
  Transmission Date: 20150721
  Serious: No
  Sender: FDA-Public Use
  Company Number: US-009507513-1501USA011850

PATIENT
  Age: 77 Year
  Sex: Female
  Weight: 65.31 kg

DRUGS (2)
  1. OXYTROL FOR WOMEN [Suspect]
     Active Substance: OXYBUTYNIN
     Indication: URGE INCONTINENCE
     Dosage: UNK UNK, UNKNOWN
     Route: 062
     Dates: start: 2014
  2. OXYTROL FOR WOMEN [Suspect]
     Active Substance: OXYBUTYNIN
     Dosage: 1 DF, ONCE
     Route: 062
     Dates: start: 20150125, end: 20150127

REACTIONS (4)
  - Application site erythema [Recovering/Resolving]
  - Application site vesicles [Unknown]
  - Application site irritation [Unknown]
  - Application site pruritus [Not Recovered/Not Resolved]

NARRATIVE: CASE EVENT DATE: 20150125
